FAERS Safety Report 15974289 (Version 3)
Quarter: 2019Q2

REPORT INFORMATION
  Report Type: Spontaneous
  Country: CA (occurrence: CA)
  Receive Date: 20190218
  Receipt Date: 20190527
  Transmission Date: 20190711
  Serious: Yes (Other)
  Sender: FDA-Public Use
  Company Number: CA-CELLTRION INC.-2019CA018841

PATIENT

DRUGS (6)
  1. INFLECTRA [Suspect]
     Active Substance: INFLIXIMAB-DYYB
     Dosage: 900 MG,  AT 2, 6, THEN EVERY 8 WEEKS
     Route: 042
     Dates: start: 20190207
  2. INFLECTRA [Suspect]
     Active Substance: INFLIXIMAB-DYYB
     Dosage: 900 MG,  AT 2, 6, THEN EVERY 8 WEEKS
     Route: 042
     Dates: start: 20190401
  3. PREDNISONE [PREDNISONE ACETATE] [Concomitant]
     Active Substance: PREDNISONE ACETATE
     Dosage: TAPER DOSE
  4. INFLECTRA [Suspect]
     Active Substance: INFLIXIMAB-DYYB
     Indication: COLITIS ULCERATIVE
     Dosage: 900 MG, AT 2, 6, THEN EVERY 8 WEEKS
     Route: 042
     Dates: start: 20181118
  5. INFLECTRA [Suspect]
     Active Substance: INFLIXIMAB-DYYB
     Dosage: 900 MG,  AT 2, 6, THEN EVERY 8 WEEKS
     Route: 042
     Dates: start: 20181214
  6. METHOTREXATE SODIUM. [Suspect]
     Active Substance: METHOTREXATE SODIUM
     Dosage: UNK
     Route: 065

REACTIONS (4)
  - Clostridium difficile infection [Recovered/Resolved]
  - Drug ineffective [Unknown]
  - Nasopharyngitis [Unknown]
  - Condition aggravated [Unknown]

NARRATIVE: CASE EVENT DATE: 201812
